FAERS Safety Report 14551360 (Version 1)
Quarter: 2018Q1

REPORT INFORMATION
  Report Type: Spontaneous
  Country: US (occurrence: US)
  Receive Date: 20180220
  Receipt Date: 20180220
  Transmission Date: 20180509
  Serious: Yes (Hospitalization, Other)
  Sender: FDA-Public Use
  Company Number: US-ACCORD-063434

PATIENT
  Age: 47 Year
  Sex: Female

DRUGS (2)
  1. MILRINONE [Concomitant]
     Active Substance: MILRINONE
  2. TACROLIMUS. [Suspect]
     Active Substance: TACROLIMUS
     Indication: IMMUNOSUPPRESSANT DRUG THERAPY

REACTIONS (2)
  - Right ventricular failure [Unknown]
  - Pulmonary hypertension [Not Recovered/Not Resolved]
